FAERS Safety Report 10662612 (Version 1)
Quarter: 2014Q4

REPORT INFORMATION
  Report Type: Spontaneous
  Country: US (occurrence: None)
  Receive Date: 20141217
  Receipt Date: 20141217
  Transmission Date: 20150529
  Serious: No
  Sender: FDA-Public Use
  Company Number: None

PATIENT
  Age: 67 Year
  Sex: Female
  Weight: 73.48 kg

DRUGS (1)
  1. VICTOZA [Suspect]
     Active Substance: LIRAGLUTIDE
     Indication: DRUG THERAPY
     Dosage: .6/DAILY FOR 1 WEEK; GIVEN INTO/UNDER THE SKIN
     Dates: start: 20141120, end: 20141124

REACTIONS (1)
  - Nausea [None]

NARRATIVE: CASE EVENT DATE: 20141119
